FAERS Safety Report 10364384 (Version 1)
Quarter: 2014Q3

REPORT INFORMATION
  Report Type: Spontaneous
  Country: US (occurrence: None)
  Receive Date: 20140804
  Receipt Date: 20140804
  Transmission Date: 20150326
  Serious: No
  Sender: FDA-Public Use
  Company Number: None

PATIENT
  Age: 18 Month
  Sex: Female

DRUGS (1)
  1. CAMPHOR [Suspect]
     Active Substance: CAMPHOR

REACTIONS (2)
  - Convulsion [None]
  - Accidental exposure to product by child [None]

NARRATIVE: CASE EVENT DATE: 20140506
